FAERS Safety Report 7809347-X (Version None)
Quarter: 2011Q4

REPORT INFORMATION
  Report Type: 
  Country: None (occurrence: None)
  Receive Date: 20111007
  Receipt Date: 20110921
  Transmission Date: 20120403
  Serious: Yes (Hospitalization)
  Sender: FDA-Public Use
  Company Number: TCI2011A04121

PATIENT
  Age: 71 Year
  Sex: Female

DRUGS (10)
  1. CLARUTE (DILTIAZEM HYDROCHLORIDE) [Concomitant]
  2. DIAZEPAM [Concomitant]
  3. ACETANOL (ACEBUTOLOL HYDROCHLORIDE) [Concomitant]
  4. GLORIAMIN (LEVOGLUTAMIDE, AZULENE SODIUM SULFONATE) [Concomitant]
  5. LANSOPRAZOLE [Suspect]
     Indication: GASTROOESOPHAGEAL REFLUX DISEASE
     Dosage: 30 MG (30 MG, 1 IN 1 D) ORAL
     Route: 048
     Dates: start: 20090811, end: 20091201
  6. BEZATOL SR (BEZAFIBRATE) [Concomitant]
  7. VERAPAMIL HYDROCHLORIDE [Concomitant]
  8. DIOVAN [Concomitant]
  9. PULMICORT [Concomitant]
  10. FERROMIA (FERROUS SODIUM CITRATE) [Concomitant]

REACTIONS (1)
  - COLITIS MICROSCOPIC [None]
